FAERS Safety Report 9109579 (Version 1)
Quarter: 2013Q1

REPORT INFORMATION
  Report Type: Spontaneous
  Country: US (occurrence: US)
  Receive Date: 20130222
  Receipt Date: 20130222
  Transmission Date: 20140127
  Serious: No
  Sender: FDA-Public Use
  Company Number: US-PFIZER INC-2013065115

PATIENT
  Age: 44 Year
  Sex: Male
  Weight: 81.63 kg

DRUGS (2)
  1. AMLODIPINE BESILATE [Suspect]
     Indication: HYPERTENSION
     Dosage: 2.5 MG, DAILY
  2. AMLODIPINE BESILATE [Suspect]
     Dosage: 5 MG, DAILY
     Dates: end: 20130215

REACTIONS (3)
  - Drug ineffective [Unknown]
  - Contusion [Recovered/Resolved]
  - Epistaxis [Recovered/Resolved]
